FAERS Safety Report 6855947-3 (Version None)
Quarter: 2010Q3

REPORT INFORMATION
  Report Type: 
  Country: None (occurrence: None)
  Receive Date: 20100716
  Receipt Date: 20100716
  Transmission Date: 20110219
  Serious: Yes (Other)
  Sender: FDA-Public Use
  Company Number: None

PATIENT
  Age: 56 Year
  Sex: Female
  Weight: 68.0396 kg

DRUGS (1)
  1. ZYPREXA [Suspect]
     Indication: BIPOLAR I DISORDER
     Dosage: 1 H.S. P.O. LATE APRIL - EARLY JULY
     Route: 048
     Dates: start: 20100401, end: 20100701

REACTIONS (6)
  - ABDOMINAL DISTENSION [None]
  - ABDOMINAL TENDERNESS [None]
  - BREAST SWELLING [None]
  - BREAST TENDERNESS [None]
  - FEELING ABNORMAL [None]
  - WEIGHT INCREASED [None]
